FAERS Safety Report 7167755-7 (Version None)
Quarter: 2010Q4

REPORT INFORMATION
  Report Type: 
  Country: None (occurrence: None)
  Receive Date: 20101216
  Receipt Date: 20101005
  Transmission Date: 20110411
  Serious: No
  Sender: FDA-Public Use
  Company Number: A0884944A

PATIENT
  Age: 68 Year
  Sex: Male

DRUGS (2)
  1. NICOTINE POLACRILEX [Suspect]
  2. OXYGEN [Concomitant]

REACTIONS (5)
  - INTENTIONAL DRUG MISUSE [None]
  - NICOTINE DEPENDENCE [None]
  - PAIN IN EXTREMITY [None]
  - RETCHING [None]
  - VOMITING [None]
